FAERS Safety Report 5606137-3 (Version None)
Quarter: 2008Q1

REPORT INFORMATION
  Report Type: 
  Country: None (occurrence: None)
  Receive Date: 20080125
  Receipt Date: 20080125
  Transmission Date: 20080703
  Serious: No
  Sender: FDA-Public Use
  Company Number: None

PATIENT
  Sex: Female
  Weight: 60 kg

DRUGS (2)
  1. FENTANYL-100 [Suspect]
     Indication: PAIN
     Dosage: 250MCG Q72HRS TOPICAL
     Route: 061
     Dates: start: 20071201, end: 20080101
  2. FENTANYL-100 [Suspect]
     Indication: SICKLE CELL ANAEMIA
     Dosage: 250MCG Q72HRS TOPICAL
     Route: 061
     Dates: start: 20071201, end: 20080101

REACTIONS (2)
  - INADEQUATE ANALGESIA [None]
  - RASH [None]
